FAERS Safety Report 12896288 (Version 1)
Quarter: 2016Q4

REPORT INFORMATION
  Report Type: Spontaneous
  Country: US (occurrence: US)
  Receive Date: 20161031
  Receipt Date: 20161031
  Transmission Date: 20170207
  Serious: No
  Sender: FDA-Public Use
  Company Number: US-JAZZ-2016-US-016261

PATIENT
  Sex: Female

DRUGS (14)
  1. TEGRETOL [Concomitant]
     Active Substance: CARBAMAZEPINE
  2. XYREM [Suspect]
     Active Substance: SODIUM OXYBATE
     Indication: INSOMNIA
     Dosage: 4.5 G, BID
     Route: 048
     Dates: start: 200506
  3. LAMICTAL [Concomitant]
     Active Substance: LAMOTRIGINE
  4. QUETIAPINE FUMARATE. [Concomitant]
     Active Substance: QUETIAPINE FUMARATE
  5. RIZATRIPTAN. [Concomitant]
     Active Substance: RIZATRIPTAN
  6. ACTONEL [Concomitant]
     Active Substance: RISEDRONATE SODIUM
  7. ZOMIG [Concomitant]
     Active Substance: ZOLMITRIPTAN
  8. MULTIVITAMINS [Concomitant]
     Active Substance: VITAMINS
  9. NORFLEX [Concomitant]
     Active Substance: ORPHENADRINE CITRATE
  10. GABAPENTIN. [Concomitant]
     Active Substance: GABAPENTIN
  11. PROMETRIUM [Concomitant]
     Active Substance: PROGESTERONE
  12. CALCIUM +D [Concomitant]
     Active Substance: CALCIUM\VITAMIN D
  13. VIVELLE-DOT [Concomitant]
     Active Substance: ESTRADIOL
  14. LISINOPRIL. [Concomitant]
     Active Substance: LISINOPRIL

REACTIONS (2)
  - Depression [Unknown]
  - Fatigue [Unknown]
